FAERS Safety Report 7551151-4 (Version None)
Quarter: 2011Q2

REPORT INFORMATION
  Report Type: 
  Country: None (occurrence: None)
  Receive Date: 20110616
  Receipt Date: 20110530
  Transmission Date: 20111010
  Serious: Yes (Hospitalization, Other)
  Sender: FDA-Public Use
  Company Number: US-BAYER-2010-007273

PATIENT
  Sex: Female
  Weight: 84 kg

DRUGS (19)
  1. VYVANSE [Concomitant]
     Dosage: 50 MG, UNK
     Dates: start: 20100101
  2. ABILIFY [Concomitant]
     Dosage: 5 MG, UNK
     Dates: start: 20090101, end: 20100101
  3. EFFEXOR XR [Concomitant]
     Dosage: 75 MG, TID
  4. NEXIUM [Concomitant]
     Dosage: 40 MG, UNK
     Dates: start: 20030101, end: 20100101
  5. ZOLPIDEM [Concomitant]
     Dosage: 10 MG, UNK
     Dates: start: 20000101, end: 20100101
  6. YAZ [Suspect]
     Indication: ACNE
     Dosage: UNK
     Dates: start: 20090501, end: 20100301
  7. EXFORGE [Concomitant]
     Dosage: UNK
     Dates: start: 20060101, end: 20100101
  8. ASPIRIN [Concomitant]
     Dosage: 81 MG, UNK
     Dates: start: 20090101, end: 20100101
  9. AMBIEN [Concomitant]
     Dosage: 10 MG, UNK
  10. VESICARE [Concomitant]
     Dosage: 5 MG, UNK
  11. VENLANFAXINE [Concomitant]
     Dosage: 75 MG, UNK
     Dates: start: 20090101, end: 20100101
  12. ALPRAZOLAM [Concomitant]
     Dosage: UNK
     Dates: start: 20090101, end: 20100101
  13. TRAZODONE HCL [Concomitant]
     Dosage: 50 MG, UNK
     Dates: start: 20080101, end: 20100101
  14. LOTREL [Concomitant]
  15. SIMVASTATIN [Concomitant]
     Dosage: 40 MG, UNK
  16. YAZ [Suspect]
     Indication: PREMENSTRUAL SYNDROME
  17. IBUPROFEN [Concomitant]
     Dosage: 800 MG, TID
     Dates: start: 20000101, end: 20100101
  18. ADVAIR DISKUS 100/50 [Concomitant]
  19. LOVASTATIN [Concomitant]
     Dosage: 20 MG, UNK

REACTIONS (7)
  - INTESTINAL OBSTRUCTION [None]
  - CHOLELITHIASIS [None]
  - GALLBLADDER NON-FUNCTIONING [None]
  - ABSCESS [None]
  - GALLBLADDER DISORDER [None]
  - GALLBLADDER PAIN [None]
  - CHOLECYSTITIS ACUTE [None]
